FAERS Safety Report 14947696 (Version 3)
Quarter: 2018Q3

REPORT INFORMATION
  Report Type: Spontaneous
  Country: US (occurrence: US)
  Receive Date: 20180529
  Receipt Date: 20180905
  Transmission Date: 20181010
  Serious: Yes (Other)
  Sender: FDA-Public Use
  Company Number: US-BAYER-2018-098113

PATIENT
  Age: 38 Year
  Sex: Female
  Weight: 65.77 kg

DRUGS (3)
  1. VITAFOL [FOLIC ACID] [Concomitant]
     Dosage: UNK
     Route: 048
     Dates: start: 20171228
  2. FEMAPRIN [Concomitant]
  3. MIRENA [Suspect]
     Active Substance: LEVONORGESTREL
     Indication: CONTRACEPTION
     Dosage: 20 MCG/24HR, CONT
     Route: 015
     Dates: start: 20180321, end: 20180423

REACTIONS (3)
  - Uterine perforation [None]
  - Genital haemorrhage [Recovered/Resolved]
  - Device difficult to use [None]

NARRATIVE: CASE EVENT DATE: 20180321
